FAERS Safety Report 9308063 (Version 2)
Quarter: 2013Q2

REPORT INFORMATION
  Report Type: Spontaneous
  Country: DE (occurrence: DE)
  Receive Date: 20130524
  Receipt Date: 20130614
  Transmission Date: 20140414
  Serious: Yes (Hospitalization)
  Sender: FDA-Public Use
  Company Number: DE-JNJFOC-20130509692

PATIENT
  Age: 72 Year
  Sex: Male
  Weight: 52.15 kg

DRUGS (12)
  1. XARELTO [Suspect]
     Indication: EMBOLISM VENOUS
     Route: 048
     Dates: start: 20130422, end: 20130508
  2. XARELTO [Suspect]
     Indication: DEEP VEIN THROMBOSIS
     Route: 048
     Dates: start: 20130422, end: 20130508
  3. URBASON [Concomitant]
     Route: 065
  4. IMUREK [Concomitant]
     Route: 065
  5. RAMIPRIL [Concomitant]
     Route: 065
  6. PANTOZOL [Concomitant]
     Route: 065
  7. BISOPROLOL [Concomitant]
     Route: 065
  8. CALCIUM [Concomitant]
     Dosage: 500 TWICE A DAY
     Route: 065
  9. VIGANTOLETTEN [Concomitant]
     Route: 065
  10. AMITRIPTYLIN [Concomitant]
     Route: 065
  11. FOSAMAX [Concomitant]
     Route: 065
  12. SIMVASTATIN [Concomitant]
     Route: 065

REACTIONS (2)
  - Pulmonary embolism [Unknown]
  - Drug ineffective [Unknown]
